FAERS Safety Report 6571263-1 (Version None)
Quarter: 2010Q1

REPORT INFORMATION
  Report Type: 
  Country: None (occurrence: None)
  Receive Date: 20100129
  Receipt Date: 20100120
  Transmission Date: 20100710
  Serious: Yes (Hospitalization, Disabling, Other)
  Sender: FDA-Public Use
  Company Number: A-CH2009-32609

PATIENT
  Age: 60 Year
  Sex: Female

DRUGS (13)
  1. TRACLEER [Suspect]
     Indication: SKIN ULCER
     Dosage: 125 MG, BID, ORAL; 125 MG, BID, ORAL
     Route: 048
     Dates: start: 20050601, end: 20091116
  2. TRACLEER [Suspect]
     Indication: SKIN ULCER
     Dosage: 125 MG, BID, ORAL; 125 MG, BID, ORAL
     Route: 048
     Dates: start: 20091123
  3. PREDNISOLONE [Concomitant]
  4. ASPIRIN [Concomitant]
  5. LEVOTHYROXINE SODIUM [Concomitant]
  6. RAMIPRIL [Concomitant]
  7. AMLODIPINE [Concomitant]
  8. PENTOXFYLLIN (PENTOXIFYLLINE) [Concomitant]
  9. CALCIUM (CALCIUM) [Concomitant]
  10. VIGANTOLETTEN (COLECALCIFEROL) [Concomitant]
  11. PANTOPRAZOLE SODIUM [Concomitant]
  12. METHOTREXAT (METHOTREXATE) [Concomitant]
  13. FOLIC ACID [Concomitant]

REACTIONS (6)
  - CALCINOSIS [None]
  - DISEASE PROGRESSION [None]
  - DRUG INEFFECTIVE [None]
  - IMPAIRED WORK ABILITY [None]
  - SKIN ULCER [None]
  - SYSTEMIC SCLEROSIS [None]
